FAERS Safety Report 7914014-8 (Version None)
Quarter: 2011Q4

REPORT INFORMATION
  Report Type: 
  Country: None (occurrence: None)
  Receive Date: 20111115
  Receipt Date: 20111103
  Transmission Date: 20120403
  Serious: Yes (Other)
  Sender: FDA-Public Use
  Company Number: US-BAYER-2011-107390

PATIENT
  Age: 18 Year
  Sex: Female

DRUGS (1)
  1. YAZ [Suspect]
     Dosage: UNK
     Dates: start: 20070101, end: 20071101

REACTIONS (5)
  - PAIN [None]
  - CHOLESTEROSIS [None]
  - EMOTIONAL DISTRESS [None]
  - INJURY [None]
  - HEPATIC NEOPLASM [None]
